FAERS Safety Report 19392160 (Version 1)
Quarter: 2021Q2

REPORT INFORMATION
  Report Type: Spontaneous
  Country: NL (occurrence: NL)
  Receive Date: 20210608
  Receipt Date: 20210608
  Transmission Date: 20210717
  Serious: Yes (Life-Threatening, Hospitalization, Other)
  Sender: FDA-Public Use
  Company Number: NL-FRESENIUS KABI-FK202105724

PATIENT
  Age: 71 Year
  Sex: Male
  Weight: 82.5 kg

DRUGS (4)
  1. OXALIPLATIN (MANUFACTURER UNKNOWN) [Suspect]
     Active Substance: OXALIPLATIN
     Indication: RECTOSIGMOID CANCER METASTATIC
     Dosage: 2ND CYCLE CAPOX (= CAPECITABINE AND OXALIPLATINE) ON 01?04?2021?OXALIPLATIN ? INFUSION
     Route: 065
     Dates: start: 20210312, end: 20210401
  2. CAPECITABINE. [Suspect]
     Active Substance: CAPECITABINE
     Indication: RECTOSIGMOID CANCER METASTATIC
     Dosage: 2ND CYCLE CAPOX (= CAPECITABINE AND OXALIPLATINE) ON 01?04?2021?CAPECITABINE 150 MG ? FILM?COATED TA
     Route: 065
     Dates: start: 20210312, end: 20210401
  3. MACROGOL [Concomitant]
     Active Substance: POLYETHYLENE GLYCOLS
     Indication: PRODUCT USED FOR UNKNOWN INDICATION
     Dosage: POWDER FOR DRINK ?MACROGOL ? POWDER FOR ORAL SOLUTION
     Route: 065
  4. MAGNESIUM HYDROXIDE/ALGELDRATE [Concomitant]
     Indication: PRODUCT USED FOR UNKNOWN INDICATION
     Dosage: SUSPENSION, 40/20 MG/ML (MILLIGRAM PER MILLILITER) ?MAGNESIUM HYDROXIDE 20MG/ML, ALGELDRATE 40MG/ML
     Route: 065

REACTIONS (1)
  - Pneumatosis intestinalis [Not Recovered/Not Resolved]

NARRATIVE: CASE EVENT DATE: 20210412
